FAERS Safety Report 4563807-6 (Version None)
Quarter: 2005Q1

REPORT INFORMATION
  Report Type: 
  Country: None (occurrence: None)
  Receive Date: 20050121
  Receipt Date: 20041216
  Transmission Date: 20050727
  Serious: No
  Sender: FDA-Public Use
  Company Number: US_0412109199

PATIENT
  Age: 38 Year
  Sex: Female

DRUGS (37)
  1. OLANZAPINE [Suspect]
     Indication: MENTAL DISORDER
     Dosage: 20 MG
     Dates: start: 20001106
  2. OLANZAPINE [Suspect]
     Dosage: 20 MG
     Dates: start: 20011201, end: 20031201
  3. PROZAC [Suspect]
     Dosage: 90 MG
  4. LORAZEPAM [Concomitant]
  5. METFORMIN HCL [Concomitant]
  6. GLYBURIDE [Concomitant]
  7. PREVACID [Concomitant]
  8. AMOXICILLIN AND CLAVULANATE POTASSIUM [Concomitant]
  9. LEVORA 0.15/30-21 [Concomitant]
  10. PROTONIX [Concomitant]
  11. AMBIEN [Concomitant]
  12. AMOXIL (AMOXCILLIN TRIHYDRATE) [Concomitant]
  13. OXYCODONE AND ACETAMINOPHEN [Concomitant]
  14. CIPROFLOXACIN HCL [Concomitant]
  15. MEPERIDINE [Concomitant]
  16. PROMETHAZINE [Concomitant]
  17. ZITHROMAX [Concomitant]
  18. APAP W/CODEINE [Concomitant]
  19. TRIAMCINOLONE [Concomitant]
  20. LEVLEN 28 [Concomitant]
  21. RANITIDINE [Concomitant]
  22. DIAZEPAM [Concomitant]
  23. GUIATUSS (GUAIFENESIN L.A.) [Concomitant]
  24. CIMETIDINE [Concomitant]
  25. METRONIDAZOLE HCL [Concomitant]
  26. CLEOCIN [Concomitant]
  27. CROTAMITREX (CROTAMITON) [Concomitant]
  28. NAPROXEN SODIUM [Concomitant]
  29. CEFACLOR [Concomitant]
  30. ALLEGRA [Concomitant]
  31. CEFZIL [Concomitant]
  32. PREDNISONE [Concomitant]
  33. NASONEX [Concomitant]
  34. ZYRTEC [Concomitant]
  35. WELLBUTRIN SR [Concomitant]
  36. BENZOTROPINE MESILATE) [Concomitant]
  37. SYNTHROID [Concomitant]

REACTIONS (22)
  - ABORTION SPONTANEOUS [None]
  - ALANINE AMINOTRANSFERASE INCREASED [None]
  - ASPARTATE AMINOTRANSFERASE INCREASED [None]
  - BLOOD ALKALINE PHOSPHATASE INCREASED [None]
  - BLOOD CHOLESTEROL INCREASED [None]
  - BRONCHITIS [None]
  - CONDITION AGGRAVATED [None]
  - DIABETES MELLITUS [None]
  - DIFFICULTY IN WALKING [None]
  - DRUG EXPOSURE DURING PREGNANCY [None]
  - FIBROCYSTIC BREAST DISEASE [None]
  - GASTROOESOPHAGEAL REFLUX DISEASE [None]
  - HALLUCINATION, AUDITORY [None]
  - HEADACHE [None]
  - HEPATIC ENZYME INCREASED [None]
  - LOW DENSITY LIPOPROTEIN INCREASED [None]
  - METRORRHAGIA [None]
  - NEPHROLITHIASIS [None]
  - PLANTAR FASCIITIS [None]
  - RASH [None]
  - TENDERNESS [None]
  - WEIGHT INCREASED [None]
